FAERS Safety Report 4928786-8 (Version None)
Quarter: 2006Q1

REPORT INFORMATION
  Report Type: 
  Country: None (occurrence: None)
  Receive Date: 20060301
  Receipt Date: 20060222
  Transmission Date: 20060701
  Serious: Yes (Hospitalization)
  Sender: FDA-Public Use
  Company Number: FR-JNJFOC-20050601184

PATIENT
  Age: 53 Year
  Sex: Female
  Weight: 70 kg

DRUGS (7)
  1. REMICADE [Suspect]
     Indication: RHEUMATOID ARTHRITIS
     Route: 042
  2. CORTANCYL [Suspect]
     Indication: RHEUMATOID ARTHRITIS
     Route: 048
  3. ARAVA [Suspect]
     Indication: RHEUMATOID ARTHRITIS
     Route: 048
  4. DI-ANTALVIC [Concomitant]
     Route: 048
  5. DI-ANTALVIC [Concomitant]
     Route: 048
  6. LAROXYL [Concomitant]
     Route: 048
  7. LEVOTHYROX [Concomitant]
     Route: 048

REACTIONS (2)
  - PSEUDOMONAS INFECTION [None]
  - SINUSITIS ASPERGILLUS [None]
